FAERS Safety Report 6301081-0 (Version None)
Quarter: 2009Q3

REPORT INFORMATION
  Report Type: 
  Country: None (occurrence: None)
  Receive Date: 20090807
  Receipt Date: 20090729
  Transmission Date: 20100115
  Serious: Yes (Other)
  Sender: FDA-Public Use
  Company Number: PHHY2009MX31624

PATIENT
  Sex: Female

DRUGS (2)
  1. TRILEPTAL [Suspect]
     Indication: EPILEPSY
     Dosage: 3 TABLETS (300 MG) PER DAY
     Route: 048
     Dates: start: 20090601
  2. LIPITOR [Concomitant]
     Indication: HYPERCHOLESTEROLAEMIA
     Dosage: UNK
     Dates: end: 20090627

REACTIONS (3)
  - FACIAL PAIN [None]
  - TOOTHACHE [None]
  - TRIGEMINAL NEURALGIA [None]
